FAERS Safety Report 5597151-5 (Version None)
Quarter: 2008Q1

REPORT INFORMATION
  Report Type: 
  Country: None (occurrence: None)
  Receive Date: 20080121
  Receipt Date: 20080107
  Transmission Date: 20080703
  Serious: Yes (Hospitalization)
  Sender: FDA-Public Use
  Company Number: FR-WYE-H02135008

PATIENT
  Age: 43 Year
  Sex: Male

DRUGS (7)
  1. INIPOMP [Suspect]
     Indication: PEPTIC ULCER
     Dosage: 40 MG, FREQUENCY UNKNOWN
     Route: 042
     Dates: start: 20070824, end: 20070825
  2. PROGRAF [Suspect]
     Indication: RENAL TRANSPLANT
     Dosage: ^DF^
     Route: 042
     Dates: start: 20070824, end: 20070826
  3. SOLU-MEDROL [Concomitant]
     Indication: RENAL TRANSPLANT
     Dosage: UNKNOWN
  4. CIPROFLOXACIN HCL [Suspect]
     Indication: LUNG INFECTION
     Dosage: ^DF^
     Route: 042
     Dates: start: 20070824, end: 20070830
  5. NEXIUM [Suspect]
     Indication: PEPTIC ULCER
     Dosage: ^DF^
     Route: 042
     Dates: start: 20070828, end: 20070830
  6. MABTHERA [Suspect]
     Indication: RENAL TRANSPLANT
     Dosage: UNKNOWN
     Route: 042
     Dates: start: 20070821
  7. CELLCEPT [Suspect]
     Indication: RENAL TRANSPLANT
     Dosage: UNKNOWN
     Route: 042
     Dates: start: 20070824, end: 20070830

REACTIONS (1)
  - THROMBOCYTOPENIA [None]
